FAERS Safety Report 9144279 (Version 3)
Quarter: 2013Q1

REPORT INFORMATION
  Report Type: Report from Study
  Country: US (occurrence: US)
  Receive Date: 20130306
  Receipt Date: 20130328
  Transmission Date: 20140127
  Serious: Yes (Congenital Anomaly, Other)
  Sender: FDA-Public Use
  Company Number: US-ABBOTT-13P-163-1055192-00

PATIENT
  Sex: Male

DRUGS (2)
  1. KALETRA [Suspect]
     Indication: MATERNAL EXPOSURE TIMING UNSPECIFIED
     Route: 064
  2. COMBIVIR [Suspect]
     Indication: MATERNAL EXPOSURE TIMING UNSPECIFIED
     Route: 064

REACTIONS (4)
  - Congenital hydronephrosis [Unknown]
  - Urethral meatus stenosis [Unknown]
  - Foetal exposure during pregnancy [Unknown]
  - Premature baby [Unknown]
